FAERS Safety Report 4447491-8 (Version None)
Quarter: 2004Q3

REPORT INFORMATION
  Report Type: 
  Country: None (occurrence: None)
  Receive Date: 20040823
  Receipt Date: 20040514
  Transmission Date: 20050211
  Serious: No
  Sender: FDA-Public Use
  Company Number: PHEH2004US05323

PATIENT
  Age: 73 Year
  Sex: Female

DRUGS (6)
  1. ZELNORM [Suspect]
     Indication: IRRITABLE BOWEL SYNDROME
     Dosage: 6 MG BID ORAL
     Route: 048
     Dates: start: 20040201
  2. FLOVENT [Concomitant]
  3. SINGULAIR ^DIECKMANN^ (MONTELUKAST SODIUM) [Concomitant]
  4. ZANTAC [Concomitant]
  5. PREVACID [Concomitant]
  6. DIAZIDE [Concomitant]

REACTIONS (1)
  - RASH PRURITIC [None]
